FAERS Safety Report 8612215 (Version 3)
Quarter: 2012Q4

REPORT INFORMATION
  Report Type: 
  Country: GB (occurrence: GB)
  Receive Date: 20120613
  Receipt Date: 20120920
  Transmission Date: 20130627
  Serious: Yes (Death, Other)
  Sender: FDA-Public Use
  Company Number: GB-AMGEN-GBRSP2012034909

PATIENT
  Age: 63 Year
  Sex: Male
  Weight: 83 kg

DRUGS (6)
  1. ENBREL [Suspect]
     Indication: RHEUMATOID ARTHRITIS
     Dosage: 50 mg, weekly
     Route: 058
     Dates: start: 200808, end: 201202
  2. METHOTREXATE [Concomitant]
     Indication: RHEUMATOID ARTHRITIS
     Dosage: 20 mg, weekly
     Route: 048
     Dates: start: 2005
  3. FOLIC ACID [Concomitant]
     Dosage: 5 g, 2x/week
     Dates: start: 2005
  4. ATENOLOL [Concomitant]
     Dosage: UNK
  5. PARACETAMOL [Concomitant]
     Dosage: UNK
  6. ACETYLSALICYLIC ACID [Concomitant]
     Dosage: UNK

REACTIONS (1)
  - Squamous cell carcinoma of lung [Fatal]
